FAERS Safety Report 10045266 (Version 4)
Quarter: 2014Q2

REPORT INFORMATION
  Report Type: Report from Study
  Country: ES (occurrence: ES)
  Receive Date: 20140328
  Receipt Date: 20140506
  Transmission Date: 20141212
  Serious: Yes (Other)
  Sender: FDA-Public Use
  Company Number: PHHO2014ES004240

PATIENT
  Sex: 0

DRUGS (12)
  1. STI571 [Suspect]
     Indication: GASTROINTESTINAL STROMAL TUMOUR
     Dosage: 400 MG, QD
     Route: 048
     Dates: start: 20140312, end: 20140319
  2. BYL719 [Suspect]
     Indication: GASTROINTESTINAL STROMAL TUMOUR
     Dosage: 300 MG, QD
     Route: 048
     Dates: start: 20140312, end: 20140319
  3. LORAZEPAM [Concomitant]
     Dosage: 2 MG, QD
     Dates: start: 201111
  4. OMEPRAZOLE [Concomitant]
     Dosage: 20 MG, UNK
     Dates: start: 201111
  5. ESOMEPRAZOLE [Concomitant]
     Dosage: UNK
     Dates: start: 20140319
  6. DULOXETINE [Concomitant]
     Dosage: UNK
     Dates: start: 20140221
  7. ESCITALOPRAM [Concomitant]
     Dosage: UNK
  8. INNOHEP [Concomitant]
     Dosage: 14000 U, UNK
     Dates: start: 201304
  9. STILNOX [Concomitant]
     Dosage: 10 MG, QD
     Dates: start: 201111
  10. PARACETAMOL [Concomitant]
     Indication: PAIN
     Dosage: 1 G, PRN
  11. METAMIZOLE [Concomitant]
     Indication: PAIN
     Dosage: UNK, PRN
  12. ZYLORIC [Concomitant]
     Dosage: 100 MG, QD
     Dates: start: 20140312

REACTIONS (1)
  - Proteinuria [Not Recovered/Not Resolved]
